FAERS Safety Report 6879219-6 (Version None)
Quarter: 2010Q3

REPORT INFORMATION
  Report Type: 
  Country: None (occurrence: None)
  Receive Date: 20100728
  Receipt Date: 20100713
  Transmission Date: 20110219
  Serious: No
  Sender: FDA-Public Use
  Company Number: PHHY2010AU30057

PATIENT
  Sex: Female

DRUGS (1)
  1. GLEEVEC [Suspect]
     Indication: CHRONIC MYELOID LEUKAEMIA
     Dosage: 400 MG, UNK
     Route: 048
     Dates: start: 20100110

REACTIONS (6)
  - ALOPECIA [None]
  - ARTHROPATHY [None]
  - INFLUENZA [None]
  - LYMPHADENOPATHY [None]
  - MADAROSIS [None]
  - TONSILLITIS [None]
